FAERS Safety Report 4956357-6 (Version None)
Quarter: 2006Q1

REPORT INFORMATION
  Report Type: 
  Country: None (occurrence: None)
  Receive Date: 20060329
  Receipt Date: 20040222
  Transmission Date: 20060701
  Serious: Yes (Other)
  Sender: FDA-Public Use
  Company Number: PHNU2004DE00996

PATIENT
  Sex: Male
  Weight: 90 kg

DRUGS (15)
  1. PRODIUVAN [Concomitant]
     Dosage: 160 MG, QD
  2. CERTICAN [Concomitant]
     Indication: CORNEAL TRANSPLANT
     Dosage: 0.75 MEQ, BID
     Dates: start: 20060101
  3. PENTOXIFYLLINE [Suspect]
     Dates: start: 20040208, end: 20040217
  4. DECORTIN [Concomitant]
  5. LEGALON [Concomitant]
     Dosage: 140 MG, BID
  6. COSOPT [Concomitant]
  7. INFLANEFRAN [Concomitant]
  8. ALPHAGAN [Concomitant]
  9. SANDIMMUNE [Suspect]
     Indication: CORNEAL TRANSPLANT
     Dosage: 75 MG, BID
     Dates: start: 20060315
  10. SANDIMMUNE [Suspect]
     Dosage: 3 MG/KG, UNK
     Dates: start: 19990101
  11. ADSORBONAC [Concomitant]
  12. DIOVAN [Suspect]
     Dosage: 80MG/DAY
  13. DIOVAN [Suspect]
     Dosage: 160MG/DAY
  14. ZANTAC [Concomitant]
  15. HYLOCOMOD [Concomitant]

REACTIONS (11)
  - ALANINE AMINOTRANSFERASE INCREASED [None]
  - BLOOD PRESSURE INCREASED [None]
  - DEAFNESS [None]
  - DIZZINESS [None]
  - DRUG LEVEL INCREASED [None]
  - LIVER FUNCTION TEST ABNORMAL [None]
  - NUCLEAR MAGNETIC RESONANCE IMAGING ABNORMAL [None]
  - RENAL IMPAIRMENT [None]
  - TRANSPLANT REJECTION [None]
  - UVEITIS [None]
  - VASCULITIS [None]
